FAERS Safety Report 9592825 (Version 2)
Quarter: 2013Q4

REPORT INFORMATION
  Report Type: Spontaneous
  Country: GB (occurrence: GB)
  Receive Date: 20131004
  Receipt Date: 20131030
  Transmission Date: 20140711
  Serious: Yes (Death, Congenital Anomaly)
  Sender: FDA-Public Use
  Company Number: PHFR2013GB005588

PATIENT
  Sex: Male

DRUGS (2)
  1. CLOZARIL [Suspect]
     Indication: SCHIZOPHRENIA
     Dosage: 200 MG, DAILY
     Route: 048
     Dates: start: 20130315
  2. LAMOTRIGINE [Concomitant]
     Dosage: 150 MG, DAILY
     Route: 048

REACTIONS (2)
  - Haemorrhage intracranial [Fatal]
  - Congenital cerebrovascular anomaly [Fatal]
